FAERS Safety Report 9356238 (Version 2)
Quarter: 2013Q2

REPORT INFORMATION
  Report Type: Spontaneous
  Country: FR (occurrence: FR)
  Receive Date: 20130619
  Receipt Date: 20130627
  Transmission Date: 20140414
  Serious: Yes (Death, Hospitalization, Other)
  Sender: FDA-Public Use
  Company Number: FR-TEVA-413566ISR

PATIENT
  Age: 90 Year
  Sex: Male

DRUGS (3)
  1. FUROSEMIDE TEVA 40 MG [Suspect]
     Indication: OEDEMA PERIPHERAL
     Dosage: 40 MILLIGRAM DAILY;
     Dates: start: 201305, end: 201305
  2. FUROSEMIDE TEVA 40 MG [Suspect]
     Indication: OEDEMA PERIPHERAL
     Dosage: 20 MILLIGRAM DAILY;
     Dates: start: 201305, end: 20130601
  3. CORTISONE (UNKNOWN BRAND NAME) [Concomitant]

REACTIONS (4)
  - Death [Fatal]
  - Aphagia [Unknown]
  - Lung infection [Unknown]
  - Respiratory disorder [Unknown]
